FAERS Safety Report 4963089-7 (Version None)
Quarter: 2006Q2

REPORT INFORMATION
  Report Type: 
  Country: None (occurrence: None)
  Receive Date: 20060405
  Receipt Date: 20060308
  Transmission Date: 20061013
  Serious: Yes (Other)
  Sender: FDA-Public Use
  Company Number: AU-GLAXOSMITHKLINE-B0415787A

PATIENT
  Age: 70 Year
  Sex: Male

DRUGS (6)
  1. AVANDIA [Suspect]
     Dosage: 4MG UNKNOWN
     Route: 065
  2. PIOGLITAZONE HCL [Suspect]
     Indication: DIABETES MELLITUS
     Dosage: 30MG UNKNOWN
     Route: 065
  3. DAONIL [Concomitant]
     Indication: DIABETES MELLITUS
     Route: 065
  4. METFORMIN [Concomitant]
     Route: 065
  5. OMEPRAZOLE [Concomitant]
     Route: 065
  6. SIMVASTATIN [Concomitant]
     Dosage: 20MG PER DAY
     Route: 065

REACTIONS (5)
  - AGGRESSION [None]
  - AMNESIA [None]
  - CONFUSIONAL STATE [None]
  - PARANOIA [None]
  - PSYCHOTIC DISORDER [None]
